FAERS Safety Report 6609293-3 (Version None)
Quarter: 2010Q1

REPORT INFORMATION
  Report Type: 
  Country: None (occurrence: None)
  Receive Date: 20100224
  Receipt Date: 20100215
  Transmission Date: 20100710
  Serious: Yes (Hospitalization)
  Sender: FDA-Public Use
  Company Number: B0635199A

PATIENT
  Age: 86 Year
  Sex: Female

DRUGS (2)
  1. ATOVAQUONE [Suspect]
     Indication: BABESIOSIS
     Dosage: 750 / TWICE PER DAY / UNKNWON
     Dates: start: 20050715
  2. AZITHROMYCIN (AZITHROMYCIN) (FORMULATION UNKNOWN) (GENERIC) [Suspect]
     Indication: BABESIOSIS
     Dosage: ORAL
     Route: 048
     Dates: start: 20050715

REACTIONS (11)
  - ANAEMIA [None]
  - ASTHENIA [None]
  - CHILLS [None]
  - DECREASED APPETITE [None]
  - DRUG RESISTANCE [None]
  - HYPERHIDROSIS [None]
  - PATHOGEN RESISTANCE [None]
  - PYREXIA [None]
  - RASH GENERALISED [None]
  - THROMBOCYTOPENIA [None]
  - WEIGHT DECREASED [None]
